FAERS Safety Report 7818503-6 (Version None)
Quarter: 2011Q4

REPORT INFORMATION
  Report Type: 
  Country: None (occurrence: None)
  Receive Date: 20111017
  Receipt Date: 20111007
  Transmission Date: 20120403
  Serious: Yes (Hospitalization)
  Sender: FDA-Public Use
  Company Number: KR-ASTRAZENECA-2011SE60031

PATIENT
  Sex: Female

DRUGS (6)
  1. VORINOSTAT [Suspect]
     Dates: start: 20110819, end: 20110930
  2. VORINOSTAT [Suspect]
     Dates: start: 20111004
  3. IRESSA [Suspect]
     Route: 048
     Dates: start: 20110819, end: 20110930
  4. MEGESTEROL [Concomitant]
     Dates: start: 20110822, end: 20110929
  5. LOPERAMIDE HCL [Concomitant]
     Dates: start: 20110904, end: 20110929
  6. IRESSA [Suspect]
     Route: 048
     Dates: start: 20111004

REACTIONS (2)
  - RENAL FAILURE ACUTE [None]
  - DIARRHOEA [None]
